FAERS Safety Report 17001671 (Version 1)
Quarter: 2019Q4

REPORT INFORMATION
  Report Type: Spontaneous
  Country: AU (occurrence: AU)
  Receive Date: 20191106
  Receipt Date: 20191106
  Transmission Date: 20200122
  Serious: Yes (Other)
  Sender: FDA-Public Use
  Company Number: AU-GILEAD-2019-0436272

PATIENT
  Age: 60 Year
  Sex: Male

DRUGS (2)
  1. ENTECAVIR. [Concomitant]
     Active Substance: ENTECAVIR
  2. VIREAD [Suspect]
     Active Substance: TENOFOVIR DISOPROXIL FUMARATE
     Indication: CHRONIC HEPATITIS B
     Dosage: UNK
     Route: 065

REACTIONS (2)
  - Hepatitis cholestatic [Unknown]
  - Acute hepatitis B [Unknown]
